FAERS Safety Report 8959634 (Version 2)
Quarter: 2013Q1

REPORT INFORMATION
  Report Type: Spontaneous
  Country: US (occurrence: US)
  Receive Date: 20121212
  Receipt Date: 20130122
  Transmission Date: 20140127
  Serious: Yes (Other)
  Sender: FDA-Public Use
  Company Number: US-US-EMD SERONO, INC.-7180538

PATIENT
  Sex: Female

DRUGS (4)
  1. REBIF [Suspect]
     Indication: MULTIPLE SCLEROSIS
     Route: 058
     Dates: start: 2006, end: 201003
  2. REBIF [Suspect]
     Route: 058
     Dates: end: 201103
  3. REBIF [Suspect]
     Route: 058
     Dates: end: 201203
  4. ORAL MEDICATION [Concomitant]
     Indication: TYPE 2 DIABETES MELLITUS

REACTIONS (9)
  - Diabetes mellitus inadequate control [Unknown]
  - Intervertebral disc protrusion [Recovered/Resolved]
  - Varicose vein [Unknown]
  - Thrombosis [Unknown]
  - Bladder disorder [Unknown]
  - Weight increased [Unknown]
  - Influenza [Unknown]
  - Adverse drug reaction [Unknown]
  - Depression [Recovered/Resolved]
